FAERS Safety Report 9174480 (Version 1)
Quarter: 2013Q1

REPORT INFORMATION
  Report Type: Spontaneous
  Country: US (occurrence: US)
  Receive Date: 20130320
  Receipt Date: 20130320
  Transmission Date: 20140127
  Serious: No
  Sender: FDA-Public Use
  Company Number: US-MYLANLABS-2012S1012472

PATIENT
  Age: 63 Year
  Sex: Female
  Weight: 79.38 kg

DRUGS (3)
  1. ESTRADIOL TRANSDERMAL SYSTEM, USP [Suspect]
     Indication: HORMONE THERAPY
     Dosage: CHANGE WEEKLY
     Route: 062
     Dates: start: 2010
  2. ZEGERID [Concomitant]
     Indication: ABDOMINAL OPERATION
     Route: 048
  3. VITAMINS [Concomitant]

REACTIONS (4)
  - Drug effect decreased [Not Recovered/Not Resolved]
  - Headache [Not Recovered/Not Resolved]
  - Hot flush [Not Recovered/Not Resolved]
  - Wrong technique in drug usage process [Not Recovered/Not Resolved]
